FAERS Safety Report 5000344-9 (Version None)
Quarter: 2006Q2

REPORT INFORMATION
  Report Type: 
  Country: None (occurrence: None)
  Receive Date: 20060511
  Receipt Date: 20060301
  Transmission Date: 20061013
  Serious: Yes (Hospitalization)
  Sender: FDA-Public Use
  Company Number: US-MERCK-0603USA00467

PATIENT
  Age: 56 Year
  Sex: Female
  Weight: 102 kg

DRUGS (11)
  1. VIOXX [Suspect]
     Indication: PAIN
     Route: 048
     Dates: start: 19990101, end: 20000101
  2. HUMULIN N [Concomitant]
     Indication: DIABETES MELLITUS
     Route: 058
  3. HUMULIN N [Concomitant]
     Route: 058
  4. REZULIN [Concomitant]
     Indication: DIABETES MELLITUS
     Route: 065
  5. REZULIN [Concomitant]
     Route: 065
  6. DIGOXIN [Concomitant]
     Route: 065
  7. ASPIRIN [Concomitant]
     Route: 065
  8. DYAZIDE [Concomitant]
     Route: 065
  9. VANCENASE [Concomitant]
     Route: 055
  10. NORFLEX [Concomitant]
     Route: 065
  11. [COMPOSITION UNSPECIFIED] [Concomitant]
     Route: 065

REACTIONS (6)
  - ANGINA PECTORIS [None]
  - BREAST MASS [None]
  - CARDIAC VALVE DISEASE [None]
  - CAROTID ARTERY STENOSIS [None]
  - POSTOPERATIVE INFECTION [None]
  - PRESCRIBED OVERDOSE [None]
